FAERS Safety Report 18979555 (Version 1)
Quarter: 2021Q1

REPORT INFORMATION
  Report Type: Spontaneous
  Country: DK (occurrence: DK)
  Receive Date: 20210308
  Receipt Date: 20210308
  Transmission Date: 20210420
  Serious: Yes (Other)
  Sender: FDA-Public Use
  Company Number: DK-TEVA-2021-DK-1887001

PATIENT
  Age: 70 Year
  Sex: Female

DRUGS (1)
  1. OMEPRAZOLE ^TEVA^ [Suspect]
     Active Substance: OMEPRAZOLE
     Indication: HIATUS HERNIA
     Dosage: DOSAGE: ONE CAPSULE WHEN NEEDED AT BEDTIME , UNIT DOSE : 20 MG
     Route: 048
     Dates: start: 20120914

REACTIONS (4)
  - Dyspnoea [Unknown]
  - Suffocation feeling [Unknown]
  - Dry mouth [Unknown]
  - Swollen tongue [Unknown]

NARRATIVE: CASE EVENT DATE: 2020
